FAERS Safety Report 7086018-1 (Version None)
Quarter: 2010Q4

REPORT INFORMATION
  Report Type: 
  Country: None (occurrence: None)
  Receive Date: 20101105
  Receipt Date: 20101102
  Transmission Date: 20110411
  Serious: Yes (Hospitalization)
  Sender: FDA-Public Use
  Company Number: A0795852A

PATIENT
  Age: 70 Year
  Sex: Male
  Weight: 91.8 kg

DRUGS (1)
  1. AVANDIA [Suspect]
     Indication: DIABETES MELLITUS
     Route: 048

REACTIONS (5)
  - CARDIOVASCULAR DISORDER [None]
  - OEDEMA PERIPHERAL [None]
  - RENAL DISORDER [None]
  - STENT PLACEMENT [None]
  - SUPRAVENTRICULAR TACHYCARDIA [None]
